FAERS Safety Report 7961548-6 (Version None)
Quarter: 2011Q4

REPORT INFORMATION
  Report Type: 
  Country: None (occurrence: None)
  Receive Date: 20111202
  Receipt Date: 20111118
  Transmission Date: 20120403
  Serious: Yes (Other)
  Sender: FDA-Public Use
  Company Number: 2011P1013287

PATIENT
  Age: 72 Year
  Sex: Female

DRUGS (6)
  1. FENTANYL [Suspect]
     Dosage: 1 PATCH;TDER
     Route: 062
  2. VELCADE [Suspect]
     Indication: MULTIPLE MYELOMA
     Dosage: 2.2 MG/M^2;IV ; 1.7 MG/M^2;IV  ;1.2 MG/M^2;IV ; 0.7 MG/M^2;IV
     Route: 042
     Dates: start: 20110811, end: 20110818
  3. VELCADE [Suspect]
     Indication: MULTIPLE MYELOMA
     Dosage: 2.2 MG/M^2;IV ; 1.7 MG/M^2;IV  ;1.2 MG/M^2;IV ; 0.7 MG/M^2;IV
     Route: 042
     Dates: start: 20110912
  4. VELCADE [Suspect]
     Indication: MULTIPLE MYELOMA
     Dosage: 2.2 MG/M^2;IV ; 1.7 MG/M^2;IV  ;1.2 MG/M^2;IV ; 0.7 MG/M^2;IV
     Route: 042
     Dates: end: 20110919
  5. VELCADE [Suspect]
     Indication: MULTIPLE MYELOMA
     Dosage: 2.2 MG/M^2;IV ; 1.7 MG/M^2;IV  ;1.2 MG/M^2;IV ; 0.7 MG/M^2;IV
     Route: 042
     Dates: start: 20110606, end: 20110808
  6. FENTANYL-75 [Suspect]
     Dosage: 1 PATCH;TDER
     Route: 062
     Dates: start: 20110919

REACTIONS (7)
  - VISUAL IMPAIRMENT [None]
  - AUTONOMIC NEUROPATHY [None]
  - NEUROPATHY PERIPHERAL [None]
  - PARAESTHESIA [None]
  - FALL [None]
  - DIZZINESS [None]
  - NEURALGIA [None]
